FAERS Safety Report 22661479 (Version 1)
Quarter: 2023Q2

REPORT INFORMATION
  Report Type: Spontaneous
  Country: US (occurrence: US)
  Receive Date: 20230630
  Receipt Date: 20230630
  Transmission Date: 20230722
  Serious: No
  Sender: FDA-Public Use
  Company Number: US-MYLANLABS-2023M1057256

PATIENT
  Sex: Female
  Weight: 49.9 kg

DRUGS (2)
  1. ESTRADIOL TRANSDERMAL SYSTEM [Suspect]
     Active Substance: ESTRADIOL
     Indication: Mood swings
     Dosage: 0.05 MILLIGRAM, QD (APPLIED ONCE A WEEK )
     Route: 062
  2. ESTRADIOL TRANSDERMAL SYSTEM [Suspect]
     Active Substance: ESTRADIOL
     Indication: Hormone replacement therapy

REACTIONS (4)
  - Application site swelling [Unknown]
  - Application site rash [Unknown]
  - Application site erythema [Unknown]
  - Product adhesion issue [Unknown]
